FAERS Safety Report 8926422 (Version 3)
Quarter: 2013Q1

REPORT INFORMATION
  Report Type: Spontaneous
  Country: FR (occurrence: FR)
  Receive Date: 20121127
  Receipt Date: 20130123
  Transmission Date: 20140127
  Serious: Yes (Hospitalization)
  Sender: FDA-Public Use
  Company Number: FR-PFIZER INC-2012293359

PATIENT
  Age: 83 Year
  Sex: Female

DRUGS (5)
  1. LYRICA [Suspect]
     Indication: NEURALGIA
     Dosage: 75 MG, 1X/DAY
     Route: 048
     Dates: start: 20121019, end: 20121024
  2. EUPANTOL [Suspect]
     Indication: STRESS ULCER
     Dosage: 20 MG, UNK
     Route: 048
     Dates: start: 20121013
  3. LAROSCORBINE [Suspect]
     Indication: VITAMIN C DEFICIENCY
     Dosage: 1 DF, UNK
     Route: 042
     Dates: start: 20121023, end: 20121023
  4. OXYNORMORO [Suspect]
     Indication: PAIN
     Dosage: UNK
     Route: 048
     Dates: start: 20121022
  5. KARDEGIC [Concomitant]
     Indication: PROPHYLAXIS
     Dosage: UNK
     Dates: end: 20121012

REACTIONS (2)
  - Rash [Recovered/Resolved]
  - Pruritus [Recovered/Resolved]
